FAERS Safety Report 4969705-8 (Version None)
Quarter: 2006Q1

REPORT INFORMATION
  Report Type: 
  Country: None (occurrence: None)
  Receive Date: 20060201
  Receipt Date: 20051227
  Transmission Date: 20060701
  Serious: No
  Sender: FDA-Public Use
  Company Number: 2005PV006271

PATIENT
  Age: 73 Year
  Sex: Female
  Weight: 86.1834 kg

DRUGS (13)
  1. BYETTA [Suspect]
     Indication: DIABETES MELLITUS NON-INSULIN-DEPENDENT
     Dosage: 5 MCG;BID;SC
     Route: 058
     Dates: start: 20051220
  2. GLUCOTROL XL [Concomitant]
  3. COREG [Concomitant]
  4. ALTACE [Concomitant]
  5. FOSAMAX [Concomitant]
  6. SYNTHROID [Concomitant]
  7. LIPITOR [Concomitant]
  8. HECTOROL [Concomitant]
  9. NEURONTIN [Concomitant]
  10. ALLOPURINOL [Concomitant]
  11. NIFEREX [Concomitant]
  12. PERCOCET [Concomitant]
  13. LASIX [Concomitant]

REACTIONS (4)
  - DYSPEPSIA [None]
  - ERUCTATION [None]
  - HEADACHE [None]
  - HYPERCHLORHYDRIA [None]
